FAERS Safety Report 13692727 (Version 1)
Quarter: 2017Q2

REPORT INFORMATION
  Report Type: Spontaneous
  Country: JP (occurrence: JP)
  Receive Date: 20170627
  Receipt Date: 20170627
  Transmission Date: 20170830
  Serious: Yes (Hospitalization, Other)
  Sender: FDA-Public Use
  Company Number: JP-ROCHE-1849261

PATIENT
  Age: 70 Year
  Sex: Male

DRUGS (1)
  1. RITUXAN [Suspect]
     Active Substance: RITUXIMAB
     Indication: FACTOR XIII DEFICIENCY
     Dosage: 09/JUN/2014, 24/JUN/2014, 01/JUL/2014, 02/SEP/2014, 02/OCT/2014, 09/OCT/2014
     Route: 042
     Dates: start: 20140602

REACTIONS (4)
  - Staphylococcal infection [Unknown]
  - Bile duct stone [Unknown]
  - Suture rupture [Recovered/Resolved]
  - Pulmonary artery thrombosis [Recovering/Resolving]
